FAERS Safety Report 8245855 (Version 2)
Quarter: 2012Q4

REPORT INFORMATION
  Report Type: 
  Country: ES (occurrence: ES)
  Receive Date: 20111115
  Receipt Date: 20121102
  Transmission Date: 20130627
  Serious: Yes (Hospitalization)
  Sender: FDA-Public Use
  Company Number: ES-GILEAD-2011-0046586

PATIENT
  Age: 79 Year
  Sex: Male

DRUGS (9)
  1. HEPSERA [Suspect]
     Indication: HEPATITIS POST TRANSFUSION
     Route: 048
     Dates: start: 2007, end: 201109
  2. TROMALYT [Concomitant]
     Indication: MYOCARDIAL ISCHAEMIA
     Dosage: 150 mg, QD
     Route: 048
  3. OMEPRAZOL                          /00661201/ [Concomitant]
     Indication: GASTROOESOPHAGEAL REFLUX DISEASE
     Route: 048
  4. UROTROL                            /01350202/ [Concomitant]
     Indication: URINARY INCONTINENCE
     Dosage: 4 mg, QD
     Route: 048
  5. STILNOX [Concomitant]
     Indication: INSOMNIA
     Dosage: 10 mg, QD
     Route: 048
  6. PANTOPRAZOL [Concomitant]
     Indication: GASTROOESOPHAGEAL REFLUX DISEASE
     Dosage: 40 mg, UNK
     Route: 048
  7. RIVOTRIL [Concomitant]
     Indication: EPILEPSY
     Dosage: 0.25 mg, BID
     Route: 048
  8. METAMIZOLE [Concomitant]
     Indication: PRODUCT USED FOR UNKNOWN INDICATION
  9. JURNISTA [Concomitant]
     Indication: PRODUCT USED FOR UNKNOWN INDICATION
     Dosage: 4 mg, QD

REACTIONS (3)
  - Fanconi syndrome acquired [Recovered/Resolved]
  - Osteomalacia [Recovered/Resolved]
  - Hypophosphataemia [Recovered/Resolved]
